FAERS Safety Report 9270213 (Version 1)
Quarter: 2013Q2

REPORT INFORMATION
  Report Type: Spontaneous
  Country: JP (occurrence: JP)
  Receive Date: 20130503
  Receipt Date: 20130503
  Transmission Date: 20140414
  Serious: Yes (Other)
  Sender: FDA-Public Use
  Company Number: JP-GLAXOSMITHKLINE-B0888155A

PATIENT
  Age: 81 Year
  Sex: Female

DRUGS (11)
  1. PAXIL [Suspect]
     Indication: PAIN
     Dosage: 20MG PER DAY
     Route: 048
     Dates: start: 2003, end: 201304
  2. CALBLOCK [Concomitant]
     Route: 048
  3. NEUROTROPIN [Concomitant]
     Route: 048
  4. DEPAS [Concomitant]
     Route: 048
  5. MAGMITT [Concomitant]
     Route: 048
  6. CHINESE MEDICINE [Concomitant]
     Route: 048
  7. AMOBAN [Concomitant]
     Route: 048
  8. LYRICA [Concomitant]
     Route: 048
     Dates: start: 201206
  9. HORIZON [Concomitant]
     Route: 048
     Dates: start: 201304, end: 201304
  10. PERIACTIN [Concomitant]
     Route: 048
     Dates: start: 201304, end: 201304
  11. TRAMCET [Concomitant]
     Route: 048
     Dates: start: 201304

REACTIONS (4)
  - Serotonin syndrome [Not Recovered/Not Resolved]
  - Tremor [Not Recovered/Not Resolved]
  - Palpitations [Not Recovered/Not Resolved]
  - Hot flush [Not Recovered/Not Resolved]
